FAERS Safety Report 9803672 (Version 1)
Quarter: 2014Q1

REPORT INFORMATION
  Report Type: Spontaneous
  Country: US (occurrence: US)
  Receive Date: 20140108
  Receipt Date: 20140108
  Transmission Date: 20141002
  Serious: No
  Sender: FDA-Public Use
  Company Number: US-GLAXOSMITHKLINE-A1022047A

PATIENT
  Sex: Female

DRUGS (8)
  1. LOVAZA [Suspect]
     Indication: BLOOD TRIGLYCERIDES INCREASED
     Dosage: 1CAP TWICE PER DAY
     Route: 048
     Dates: start: 2009
  2. METFORMIN [Concomitant]
  3. CRESTOR [Concomitant]
  4. CLONIDINE [Concomitant]
  5. DIOVAN [Concomitant]
  6. NORVASC [Concomitant]
  7. VALIUM [Concomitant]
  8. ASPIRIN [Concomitant]

REACTIONS (1)
  - Drug ineffective [Unknown]
